FAERS Safety Report 24299470 (Version 2)
Quarter: 2024Q3

REPORT INFORMATION
  Report Type: Spontaneous
  Country: US (occurrence: US)
  Receive Date: 20240909
  Receipt Date: 20240927
  Transmission Date: 20241016
  Serious: No
  Sender: PFIZER
  Company Number: US-PFIZER INC-202400252306

PATIENT
  Age: 49 Year
  Sex: Female
  Weight: 124.72 kg

DRUGS (6)
  1. PAXLOVID [Suspect]
     Active Substance: NIRMATRELVIR\RITONAVIR
     Indication: COVID-19 treatment
     Dosage: UNK, 2X/DAY
     Route: 048
     Dates: start: 20240820, end: 20240826
  2. BUPROPION [Concomitant]
     Active Substance: BUPROPION
     Dosage: 100 MG, 2X/DAY
  3. GABAPENTIN [Concomitant]
     Active Substance: GABAPENTIN
     Dosage: 300 MG, 2X/DAY
  4. EMTRICITABINE [Concomitant]
     Active Substance: EMTRICITABINE
     Indication: Prophylaxis
     Dosage: 200/300 MG, 1X/DAY
  5. NALTREXONE [Concomitant]
     Active Substance: NALTREXONE
     Dosage: 50 MG, 1X/DAY
  6. OXYBUTYNIN [Concomitant]
     Active Substance: OXYBUTYNIN\OXYBUTYNIN CHLORIDE
     Indication: Bladder spasm
     Dosage: UNK, 2X/DAY

REACTIONS (3)
  - COVID-19 [Recovered/Resolved]
  - Disease recurrence [Recovered/Resolved]
  - Inappropriate schedule of product administration [Unknown]

NARRATIVE: CASE EVENT DATE: 20240825
